FAERS Safety Report 14919977 (Version 1)
Quarter: 2018Q2

REPORT INFORMATION
  Report Type: Spontaneous
  Country: JP (occurrence: JP)
  Receive Date: 20180521
  Receipt Date: 20180521
  Transmission Date: 20180711
  Serious: Yes (Life-Threatening, Hospitalization, Other)
  Sender: FDA-Public Use
  Company Number: JP-JNJFOC-20180434813

PATIENT
  Age: 77 Year
  Sex: Male
  Weight: 48 kg

DRUGS (6)
  1. VELCADE [Suspect]
     Active Substance: BORTEZOMIB
     Indication: PLASMA CELL MYELOMA
     Route: 058
     Dates: start: 201707
  2. VELCADE [Suspect]
     Active Substance: BORTEZOMIB
     Indication: PLASMA CELL MYELOMA
     Route: 058
     Dates: start: 20180411
  3. LENALIDOMIDE [Suspect]
     Active Substance: LENALIDOMIDE
     Indication: PLASMA CELL MYELOMA
     Route: 048
     Dates: start: 20180314
  4. LENALIDOMIDE [Suspect]
     Active Substance: LENALIDOMIDE
     Indication: PLASMA CELL MYELOMA
     Route: 048
     Dates: start: 20171220, end: 20180313
  5. DARZALEX [Suspect]
     Active Substance: DARATUMUMAB
     Indication: PLASMA CELL MYELOMA
     Dosage: STRENGTH: 100MG
     Route: 041
     Dates: start: 20171220, end: 20180412
  6. DEXAMETHASONE. [Suspect]
     Active Substance: DEXAMETHASONE
     Indication: PLASMA CELL MYELOMA
     Route: 065
     Dates: start: 20171220, end: 20180425

REACTIONS (5)
  - Cardiac failure [Recovering/Resolving]
  - C-reactive protein increased [Unknown]
  - Infusion related reaction [Recovering/Resolving]
  - Anaemia [Unknown]
  - Chills [Recovering/Resolving]

NARRATIVE: CASE EVENT DATE: 20180411
